FAERS Safety Report 8843400 (Version 1)
Quarter: 2012Q4

REPORT INFORMATION
  Report Type: 
  Country: US (occurrence: US)
  Receive Date: 20121016
  Receipt Date: 20121016
  Transmission Date: 20130627
  Serious: No
  Sender: FDA-Public Use
  Company Number: US-VERTEX PHARMACEUTICAL INC.-2012-022140

PATIENT
  Sex: Female
  Weight: 72 kg

DRUGS (3)
  1. INCIVEK [Suspect]
     Indication: HEPATITIS C
     Dosage: 750 mg, tid
     Route: 048
     Dates: end: 20120828
  2. RIBAVIRIN [Suspect]
     Indication: HEPATITIS C
     Dosage: UNK
     Dates: end: 20120828
  3. PEGASYS [Suspect]
     Indication: HEPATITIS C
     Dosage: UNK
     Dates: end: 20120828

REACTIONS (5)
  - Oral disorder [Not Recovered/Not Resolved]
  - Contusion [Not Recovered/Not Resolved]
  - Blood potassium decreased [Unknown]
  - Rash [Recovered/Resolved]
  - Anaemia [Unknown]
